FAERS Safety Report 6541310-1 (Version None)
Quarter: 2010Q1

REPORT INFORMATION
  Report Type: 
  Country: None (occurrence: None)
  Receive Date: 20100118
  Receipt Date: 20100106
  Transmission Date: 20100710
  Serious: Yes (Other)
  Sender: FDA-Public Use
  Company Number: AU-ELI_LILLY_AND_COMPANY-AU201001001715

PATIENT
  Sex: Male

DRUGS (3)
  1. ZYPREXA [Suspect]
     Indication: PSYCHOTIC DISORDER
     Dosage: UNK, UNKNOWN DOSE
  2. ZYPREXA [Suspect]
     Dosage: 10 MG, UNK
  3. VENLAFAXINE HYDROCHLORIDE [Concomitant]

REACTIONS (1)
  - HEPATITIS C POSITIVE [None]
